FAERS Safety Report 4897013-2 (Version None)
Quarter: 2006Q1

REPORT INFORMATION
  Report Type: 
  Country: None (occurrence: None)
  Receive Date: 20060127
  Receipt Date: 20060116
  Transmission Date: 20060701
  Serious: Yes (Disabling)
  Sender: FDA-Public Use
  Company Number: CA200511002744

PATIENT
  Sex: Female

DRUGS (1)
  1. ZYPREXA [Suspect]
     Dosage: UNK
     Route: 065
     Dates: start: 20051001

REACTIONS (3)
  - BLEPHAROSPASM [None]
  - BLINDNESS [None]
  - TARDIVE DYSKINESIA [None]
